FAERS Safety Report 8922228 (Version 1)
Quarter: 2012Q4

REPORT INFORMATION
  Report Type: 
  Country: BR (occurrence: BR)
  Receive Date: 20121123
  Receipt Date: 20121123
  Transmission Date: 20130627
  Serious: Yes (Other)
  Sender: FDA-Public Use
  Company Number: BR-PFIZER INC-2012292484

PATIENT
  Age: 48 Year
  Sex: Male

DRUGS (2)
  1. LIPITOR [Suspect]
     Indication: CHOLESTEROL
     Dosage: UNK, strength 10mg
     Route: 048
  2. LIPITOR [Suspect]
     Dosage: 1 DF (strength 20mg), daily
     Dates: start: 20121119

REACTIONS (1)
  - Angiopathy [Unknown]
